FAERS Safety Report 10200541 (Version 1)
Quarter: 2014Q2

REPORT INFORMATION
  Report Type: Spontaneous
  Country: US (occurrence: US)
  Receive Date: 20140528
  Receipt Date: 20140528
  Transmission Date: 20141212
  Serious: No
  Sender: FDA-Public Use
  Company Number: US-BIOGENIDEC-2014BI048791

PATIENT
  Age: 53 Year
  Sex: Female

DRUGS (7)
  1. AVONEX [Suspect]
     Indication: MULTIPLE SCLEROSIS
     Route: 030
  2. AVONEX [Suspect]
     Indication: MULTIPLE SCLEROSIS
     Route: 030
     Dates: end: 20050718
  3. AVONEX [Suspect]
     Indication: MULTIPLE SCLEROSIS
     Route: 030
     Dates: start: 20140507
  4. TECFIDERA [Concomitant]
     Indication: MULTIPLE SCLEROSIS
  5. TYLENOL [Concomitant]
  6. EMLA CREAM [Concomitant]
  7. ADVIL [Concomitant]

REACTIONS (2)
  - Overdose [Unknown]
  - Pain [Unknown]
